FAERS Safety Report 5416386-5 (Version None)
Quarter: 2007Q3

REPORT INFORMATION
  Report Type: 
  Country: None (occurrence: None)
  Receive Date: 20070816
  Receipt Date: 20070813
  Transmission Date: 20080115
  Serious: Yes (Death)
  Sender: FDA-Public Use
  Company Number: PHEH2007US10158

PATIENT
  Age: 72 Year
  Sex: Male
  Weight: 80 kg

DRUGS (5)
  1. EXJADE [Suspect]
     Indication: IRON OVERLOAD
     Dosage: 2000 MG, QD
     Route: 048
     Dates: start: 20070510, end: 20070629
  2. IMODIUM [Concomitant]
  3. PROCRIT [Concomitant]
  4. VITAMIN B-12 [Concomitant]
  5. FOLIC ACID [Concomitant]

REACTIONS (5)
  - CLOSTRIDIAL INFECTION [None]
  - GAS GANGRENE [None]
  - PAIN IN EXTREMITY [None]
  - PYREXIA [None]
  - SEPTIC SHOCK [None]
